FAERS Safety Report 5743968-3 (Version None)
Quarter: 2008Q2

REPORT INFORMATION
  Report Type: 
  Country: None (occurrence: None)
  Receive Date: 20080520
  Receipt Date: 20080515
  Transmission Date: 20081010
  Serious: Yes (Hospitalization)
  Sender: FDA-Public Use
  Company Number: US-TEVA-163444USA

PATIENT
  Age: 68 Year
  Sex: Female

DRUGS (3)
  1. CISPLATIN [Suspect]
     Indication: THYMOMA
  2. ESTROGENS CONJUGATED [Concomitant]
  3. OMEPRAZOLE [Concomitant]

REACTIONS (1)
  - COLITIS ISCHAEMIC [None]
